FAERS Safety Report 13681686 (Version 1)
Quarter: 2017Q2

REPORT INFORMATION
  Report Type: Report from Study
  Country: US (occurrence: US)
  Receive Date: 20170623
  Receipt Date: 20170623
  Transmission Date: 20170830
  Serious: No
  Sender: FDA-Public Use
  Company Number: US-IPSEN BIOPHARMACEUTICALS, INC.-2016-03415

PATIENT
  Sex: Male

DRUGS (24)
  1. DYSPORT [Suspect]
     Active Substance: ABOBOTULINUMTOXINA
     Indication: TORTICOLLIS
  2. DYSPORT [Suspect]
     Active Substance: ABOBOTULINUMTOXINA
     Indication: TORTICOLLIS
  3. DYSPORT [Suspect]
     Active Substance: ABOBOTULINUMTOXINA
     Indication: TORTICOLLIS
  4. ANDROGEL [Concomitant]
     Active Substance: TESTOSTERONE
  5. DESMOPRESIN [Concomitant]
     Active Substance: DESMOPRESSIN
  6. LORAZEPAM. [Concomitant]
     Active Substance: LORAZEPAM
  7. DYSPORT [Suspect]
     Active Substance: ABOBOTULINUMTOXINA
     Indication: TORTICOLLIS
  8. DYSPORT [Suspect]
     Active Substance: ABOBOTULINUMTOXINA
     Indication: TORTICOLLIS
  9. HYDROCODONE [Concomitant]
     Active Substance: HYDROCODONE
  10. AMBIEN [Concomitant]
     Active Substance: ZOLPIDEM TARTRATE
  11. DYSPORT [Suspect]
     Active Substance: ABOBOTULINUMTOXINA
     Indication: TORTICOLLIS
     Dosage: 500 UNITS
     Route: 065
     Dates: start: 20150812, end: 20150812
  12. DYSPORT [Suspect]
     Active Substance: ABOBOTULINUMTOXINA
     Indication: TORTICOLLIS
  13. DYSPORT [Suspect]
     Active Substance: ABOBOTULINUMTOXINA
     Indication: TORTICOLLIS
  14. SYNTHROID [Concomitant]
     Active Substance: LEVOTHYROXINE SODIUM
  15. CLARITIN [Concomitant]
     Active Substance: LORATADINE
  16. PRILOSEC [Concomitant]
     Active Substance: OMEPRAZOLE MAGNESIUM
  17. ZOLOFT [Concomitant]
     Active Substance: SERTRALINE HYDROCHLORIDE
  18. MELOXICAM. [Concomitant]
     Active Substance: MELOXICAM
  19. AXERT [Concomitant]
     Active Substance: ALMOTRIPTAN MALATE
  20. HYDROCORTISONE. [Concomitant]
     Active Substance: HYDROCORTISONE
  21. NASONEX [Concomitant]
     Active Substance: MOMETASONE FUROATE
  22. NUVIGIL [Concomitant]
     Active Substance: ARMODAFINIL
  23. DYSPORT [Suspect]
     Active Substance: ABOBOTULINUMTOXINA
     Indication: TORTICOLLIS
  24. DYSPORT [Suspect]
     Active Substance: ABOBOTULINUMTOXINA
     Indication: PRODUCT USE IN UNAPPROVED INDICATION

REACTIONS (11)
  - Fatigue [Unknown]
  - Product preparation error [Unknown]
  - Asthenia [Unknown]
  - Back pain [Unknown]
  - Neck pain [Unknown]
  - Vertigo [Unknown]
  - Headache [Unknown]
  - Pain in jaw [Unknown]
  - Pain in extremity [Unknown]
  - Poor quality sleep [Unknown]
  - Ear pain [Unknown]
